FAERS Safety Report 7163218-3 (Version None)
Quarter: 2010Q4

REPORT INFORMATION
  Report Type: 
  Country: None (occurrence: None)
  Receive Date: 20101215
  Receipt Date: 20100317
  Transmission Date: 20110411
  Serious: Yes (Other)
  Sender: FDA-Public Use
  Company Number: GB-PFIZER INC-2010034143

PATIENT
  Age: 25 Year
  Sex: Male

DRUGS (4)
  1. LYRICA [Suspect]
     Indication: ANXIETY
     Dosage: 225 MG, 2X/DAY
     Route: 048
     Dates: start: 20100222, end: 20100225
  2. LYRICA [Suspect]
     Indication: EPILEPSY
  3. PERICIAZINE [Concomitant]
     Indication: ANXIETY
     Dosage: 2.5 MG, UNK
     Route: 048
     Dates: start: 20010101
  4. PERICIAZINE [Concomitant]
     Dosage: 5 MG, UNK
     Route: 048

REACTIONS (2)
  - CONDITION AGGRAVATED [None]
  - EPILEPSY [None]
